FAERS Safety Report 19694347 (Version 3)
Quarter: 2021Q3

REPORT INFORMATION
  Report Type: Spontaneous
  Country: DE (occurrence: DE)
  Receive Date: 20210813
  Receipt Date: 20210823
  Transmission Date: 20211014
  Serious: Yes (Death, Hospitalization, Other)
  Sender: FDA-Public Use
  Company Number: DE-CELLTRION INC.-2021DE010969

PATIENT

DRUGS (45)
  1. RITUXIMAB (UNKNOWN) [Suspect]
     Active Substance: RITUXIMAB
     Indication: FOLLICULAR LYMPHOMA STAGE IV
     Dosage: UNK UNK, UNKNOWN FREQ.
     Route: 065
     Dates: start: 2013, end: 2015
  2. BENDAMUSTINE HYDROCHLORIDE. [Suspect]
     Active Substance: BENDAMUSTINE HYDROCHLORIDE
     Indication: FOLLICULAR LYMPHOMA STAGE IV
     Dosage: UNK UNK, CYCLIC (PHARMACEUTICAL DOSE FORM: POWDER EXCEPT DUSTING POWDER)
     Route: 042
     Dates: start: 2016
  3. TACROLIMUS. [Suspect]
     Active Substance: TACROLIMUS
     Indication: IMMUNOSUPPRESSANT DRUG THERAPY
  4. PREDNISOLONE. [Suspect]
     Active Substance: PREDNISOLONE
     Dosage: TAPERED DOWN FROM 90 TO 40MG/D (D118?152)
     Route: 065
  5. VENETOCLAX. [Concomitant]
     Active Substance: VENETOCLAX
     Indication: FOLLICULAR LYMPHOMA STAGE IV
     Dosage: UNK UNK, UNKNOWN FREQ.
     Route: 065
     Dates: start: 2016
  6. INFLIXIMAB (UNKNOWN) [Suspect]
     Active Substance: INFLIXIMAB
     Indication: IMMUNOSUPPRESSANT DRUG THERAPY
  7. BENDAMUSTINE HYDROCHLORIDE. [Suspect]
     Active Substance: BENDAMUSTINE HYDROCHLORIDE
     Dosage: UNK UNK, CYCLIC (PHARMACEUTICAL DOSE FORM: POWDER EXCEPT DUSTING POWDER)
     Route: 042
     Dates: start: 2013
  8. PREDNISOLONE. [Suspect]
     Active Substance: PREDNISOLONE
     Indication: DRY EYE
     Dosage: 10 MG, ONCE DAILY (D77)
     Route: 042
  9. PREDNISOLONE. [Suspect]
     Active Substance: PREDNISOLONE
     Indication: STOMATITIS
     Dosage: 100 MG, ONCE DAILY (D78)
     Route: 042
  10. PREDNISOLONE. [Suspect]
     Active Substance: PREDNISOLONE
     Dosage: SINGLE DOSE 180MG (D106)
     Route: 042
  11. PREDNISOLONE. [Suspect]
     Active Substance: PREDNISOLONE
     Dosage: 90 MG DAILY
     Route: 065
  12. PREDNISOLONE. [Suspect]
     Active Substance: PREDNISOLONE
     Dosage: 100 MILLIGRAM DAILY;
     Route: 048
  13. POLATUZUMAB VEDOTIN. [Suspect]
     Active Substance: POLATUZUMAB VEDOTIN
     Indication: FOLLICULAR LYMPHOMA STAGE IV
     Dosage: 1.8 MG/KG, CYCLIC (D1 OF C1?6)
     Route: 065
     Dates: start: 2017
  14. POLATUZUMAB VEDOTIN. [Suspect]
     Active Substance: POLATUZUMAB VEDOTIN
     Indication: FOLLICULAR LYMPHOMA
  15. BENDAMUSTINE [Concomitant]
     Active Substance: BENDAMUSTINE
     Indication: FOLLICULAR LYMPHOMA
     Dosage: UNK
     Route: 065
     Dates: start: 2013
  16. INFLIXIMAB (UNKNOWN) [Suspect]
     Active Substance: INFLIXIMAB
     Indication: DERMATITIS
  17. RITUXIMAB (UNKNOWN) [Suspect]
     Active Substance: RITUXIMAB
     Indication: FOLLICULAR LYMPHOMA
     Dosage: UNK UNK, UNKNOWN FREQ.
     Route: 065
     Dates: start: 2016
  18. ANAKINRA [Suspect]
     Active Substance: ANAKINRA
     Indication: STOMATITIS
  19. ANAKINRA [Suspect]
     Active Substance: ANAKINRA
     Indication: IMMUNOSUPPRESSANT DRUG THERAPY
  20. TACROLIMUS. [Suspect]
     Active Substance: TACROLIMUS
     Indication: STOMATITIS
     Dosage: 1 MILLIGRAM DAILY; 4?6 UG/L
     Route: 048
  21. PREDNISOLONE. [Suspect]
     Active Substance: PREDNISOLONE
     Indication: DERMATITIS
     Dosage: 100 MG, ONCE DAILY (D84)
     Route: 048
  22. PREDNISOLONE. [Suspect]
     Active Substance: PREDNISOLONE
     Dosage: 30 MG, ONCE DAILY (D159)
     Route: 065
  23. PREDNISOLONE. [Suspect]
     Active Substance: PREDNISOLONE
     Dosage: 100 MILLIGRAM DAILY;
     Route: 042
  24. CICLOSPORIN [Suspect]
     Active Substance: CYCLOSPORINE
     Indication: DERMATITIS
  25. OBINUTUZUMAB. [Suspect]
     Active Substance: OBINUTUZUMAB
     Indication: FOLLICULAR LYMPHOMA
     Dosage: 1000 MG, CYCLIC (ON DAY DAYS 1, 8 AND 15 OF CYCLE 1 AND DAY 1 OF CYCLE 2?CYCLE 6)
     Route: 065
     Dates: start: 2017
  26. INFLIXIMAB (UNKNOWN) [Suspect]
     Active Substance: INFLIXIMAB
     Indication: STOMATITIS
  27. ANAKINRA [Suspect]
     Active Substance: ANAKINRA
     Indication: DRY EYE
     Dosage: 100 MG/D  (D203)
     Route: 058
  28. TACROLIMUS. [Suspect]
     Active Substance: TACROLIMUS
     Indication: DRY EYE
     Dosage: 1 MG/D 4?6 UG/L (D164)
     Route: 048
  29. PREDNISOLONE. [Suspect]
     Active Substance: PREDNISOLONE
     Dosage: 100 MG, ONCE DAILY (D107)
     Route: 042
  30. PREDNISOLONE. [Suspect]
     Active Substance: PREDNISOLONE
     Dosage: 100 MG, ONCE DAILY (D164)
     Route: 065
  31. PREDNISOLONE. [Suspect]
     Active Substance: PREDNISOLONE
     Dosage: 80 MG DAILY
     Route: 065
  32. CICLOSPORIN [Suspect]
     Active Substance: CYCLOSPORINE
     Indication: IMMUNOSUPPRESSANT DRUG THERAPY
  33. PREDNISOLONE. [Suspect]
     Active Substance: PREDNISOLONE
     Dosage: TAPERED DOWN FROM 60 TO 5MG/D (D186?239)
     Route: 065
  34. CICLOSPORIN [Suspect]
     Active Substance: CYCLOSPORINE
     Indication: STOMATITIS
     Dosage: UNK
     Route: 065
  35. ATEZOLIZUMAB. [Suspect]
     Active Substance: ATEZOLIZUMAB
     Indication: FOLLICULAR LYMPHOMA STAGE IV
     Dosage: 1200 MG, CYCLIC (D1 OF C2?6)
     Route: 065
     Dates: start: 2017
  36. PREDNISOLONE. [Suspect]
     Active Substance: PREDNISOLONE
     Indication: IMMUNOSUPPRESSANT DRUG THERAPY
     Dosage: 20 MG, ONCE DAILY (D86?100)
     Route: 048
  37. PREDNISOLONE. [Suspect]
     Active Substance: PREDNISOLONE
     Dosage: TAPERED DOWN FROM 80 TO 70MG/D (D173?179)
     Route: 065
  38. TACROLIMUS. [Suspect]
     Active Substance: TACROLIMUS
     Indication: DERMATITIS
  39. PREDNISOLONE. [Suspect]
     Active Substance: PREDNISOLONE
     Dosage: 50 MG, ONCE DAILY (D161)
     Route: 065
  40. ATEZOLIZUMAB. [Suspect]
     Active Substance: ATEZOLIZUMAB
     Dosage: 1200 MG, CYCLIC (ON DAY 1 OF CYCLE 2 TO CYCLE 6)
     Route: 065
     Dates: start: 2017
  41. OBINUTUZUMAB. [Suspect]
     Active Substance: OBINUTUZUMAB
     Indication: FOLLICULAR LYMPHOMA STAGE IV
     Dosage: 1000 MG, CYCLIC (D1, D8, D15 OF C1; D1 OF C2?6)
     Route: 065
     Dates: start: 2017
  42. INFLIXIMAB (UNKNOWN) [Suspect]
     Active Substance: INFLIXIMAB
     Indication: DRY EYE
     Dosage: 425 MG, TWICE WEEKLY (D112)
     Route: 042
  43. ANAKINRA [Suspect]
     Active Substance: ANAKINRA
     Indication: DERMATITIS
  44. PREDNISOLONE. [Suspect]
     Active Substance: PREDNISOLONE
     Dosage: 60 MG DAILY
     Route: 065
  45. CICLOSPORIN [Suspect]
     Active Substance: CYCLOSPORINE
     Indication: DRY EYE
     Dosage: UNK UNK, UNKNOWN FREQ.
     Route: 065

REACTIONS (15)
  - Death [Fatal]
  - Dry eye [Unknown]
  - Immune system disorder [Unknown]
  - Bacteraemia [Recovered/Resolved]
  - Product use in unapproved indication [Unknown]
  - Viral infection [Recovered/Resolved]
  - Off label use [Unknown]
  - Dermatitis [Unknown]
  - Oral fungal infection [Unknown]
  - Oral fungal infection [Recovered/Resolved]
  - Erysipelas [Recovered/Resolved]
  - Bronchopulmonary aspergillosis [Recovered/Resolved]
  - Opportunistic infection [Unknown]
  - Rebound effect [Unknown]
  - Stomatitis [Unknown]
